FAERS Safety Report 6713350-0 (Version None)
Quarter: 2010Q2

REPORT INFORMATION
  Report Type: 
  Country: None (occurrence: None)
  Receive Date: 20100506
  Receipt Date: 20100429
  Transmission Date: 20101027
  Serious: Yes (Other)
  Sender: FDA-Public Use
  Company Number: US-AMGEN-QUU409479

PATIENT
  Sex: Female

DRUGS (2)
  1. NPLATE [Suspect]
     Indication: IDIOPATHIC THROMBOCYTOPENIC PURPURA
     Dates: start: 20080923, end: 20091013
  2. CORTICOSTEROIDS [Suspect]
     Dates: start: 20030901, end: 20031101

REACTIONS (1)
  - BIOPSY BONE MARROW ABNORMAL [None]
